FAERS Safety Report 25534130 (Version 1)
Quarter: 2025Q3

REPORT INFORMATION
  Report Type: Spontaneous
  Country: US (occurrence: None)
  Receive Date: 20250708
  Receipt Date: 20250708
  Transmission Date: 20251021
  Serious: Yes (Death)
  Sender: FDA-CTU
  Company Number: None

PATIENT
  Age: 61 Year
  Sex: Male
  Weight: 112.49 kg

DRUGS (6)
  1. ENHERTU [Suspect]
     Active Substance: FAM-TRASTUZUMAB DERUXTECAN-NXKI
     Indication: Oesophageal cancer metastatic
     Route: 042
     Dates: start: 20250522, end: 20250522
  2. LEUCOVORIN CALCIUM [Suspect]
     Active Substance: LEUCOVORIN CALCIUM
  3. FLUOROURACIL [Suspect]
     Active Substance: FLUOROURACIL
  4. OXALIPLATIN [Suspect]
     Active Substance: OXALIPLATIN
  5. FLUOROURACIL\LEUCOVORIN CALCIUM\OXALIPLATIN [Concomitant]
     Active Substance: FLUOROURACIL\LEUCOVORIN CALCIUM\OXALIPLATIN
     Dates: start: 20240810, end: 20250401
  6. HERCEPTIN [Concomitant]
     Active Substance: TRASTUZUMAB
     Dates: start: 20240810, end: 20250401

REACTIONS (7)
  - Infusion related reaction [None]
  - Dyspnoea [None]
  - Respiratory failure [None]
  - Lung opacity [None]
  - Pneumonitis [None]
  - Acute respiratory distress syndrome [None]
  - Toxicity to various agents [None]

NARRATIVE: CASE EVENT DATE: 20250618
